FAERS Safety Report 10176438 (Version 2)
Quarter: 2014Q2

REPORT INFORMATION
  Report Type: Spontaneous
  Country: TR (occurrence: TR)
  Receive Date: 20140516
  Receipt Date: 20140516
  Transmission Date: 20141212
  Serious: Yes (Life-Threatening, Hospitalization, Other)
  Sender: FDA-Public Use
  Company Number: TR-PFIZER INC-2014033416

PATIENT
  Age: 4 Month
  Sex: Male
  Weight: 8.9 kg

DRUGS (1)
  1. LIDOCAINE HCL [Suspect]
     Indication: LOCAL ANAESTHESIA
     Dosage: 2.5 AMPOULES FROM 2% (100 MG AND AN 11 MG/KG)

REACTIONS (7)
  - Overdose [Unknown]
  - Toxicity to various agents [Unknown]
  - Generalised tonic-clonic seizure [Recovering/Resolving]
  - Laryngeal oedema [Unknown]
  - Rash erythematous [Recovered/Resolved]
  - Trismus [Unknown]
  - Hypersensitivity [Unknown]
